FAERS Safety Report 25749177 (Version 1)
Quarter: 2025Q3

REPORT INFORMATION
  Report Type: Spontaneous
  Country: CN (occurrence: CN)
  Receive Date: 20250902
  Receipt Date: 20250902
  Transmission Date: 20251020
  Serious: Yes (Other)
  Sender: ACCORD
  Company Number: CN-MLMSERVICE-20250703-PI564439-00077-1

PATIENT
  Age: 27 Year
  Sex: Female

DRUGS (8)
  1. CAPECITABINE [Suspect]
     Active Substance: CAPECITABINE
     Indication: Colon cancer stage III
     Dates: start: 2021
  2. IRINOTECAN [Suspect]
     Active Substance: IRINOTECAN
     Indication: Colon cancer stage III
     Dates: start: 2021
  3. CETUXIMAB [Suspect]
     Active Substance: CETUXIMAB
     Indication: Colon cancer stage III
     Dates: start: 2021
  4. SINTILIMAB [Suspect]
     Active Substance: SINTILIMAB
     Indication: Colon cancer stage III
     Dates: start: 2021
  5. CETUXIMAB [Suspect]
     Active Substance: CETUXIMAB
     Indication: Large intestinal obstruction
     Dates: start: 2021
  6. SINTILIMAB [Suspect]
     Active Substance: SINTILIMAB
     Indication: Large intestinal obstruction
     Dates: start: 2021
  7. CAPECITABINE [Suspect]
     Active Substance: CAPECITABINE
     Indication: Large intestinal obstruction
     Dates: start: 2021
  8. IRINOTECAN [Suspect]
     Active Substance: IRINOTECAN
     Indication: Large intestinal obstruction
     Dates: start: 2021

REACTIONS (3)
  - Leukopenia [Unknown]
  - Alopecia [Unknown]
  - Gastrointestinal toxicity [Unknown]

NARRATIVE: CASE EVENT DATE: 20210101
